FAERS Safety Report 7473607-5 (Version None)
Quarter: 2011Q1

REPORT INFORMATION
  Report Type: 
  Country: None (occurrence: None)
  Receive Date: 20110302
  Receipt Date: 20100907
  Transmission Date: 20110831
  Serious: Yes (Hospitalization)
  Sender: FDA-Public Use
  Company Number: 163-21880-10081240

PATIENT
  Age: 82 Year
  Sex: Male

DRUGS (4)
  1. REVLIMID [Suspect]
     Indication: MULTIPLE MYELOMA
     Dosage: 25 MG, X 21 DAYS, PO; 25 MG, X 21 DAYS, PO; 15 MG, X 21 DAYS, PO
     Route: 048
     Dates: start: 20100716
  2. REVLIMID [Suspect]
     Indication: MULTIPLE MYELOMA
     Dosage: 25 MG, X 21 DAYS, PO; 25 MG, X 21 DAYS, PO; 15 MG, X 21 DAYS, PO
     Route: 048
     Dates: start: 20100325
  3. REVLIMID [Suspect]
     Indication: MULTIPLE MYELOMA
     Dosage: 25 MG, X 21 DAYS, PO; 25 MG, X 21 DAYS, PO; 15 MG, X 21 DAYS, PO
     Route: 048
     Dates: start: 20100819
  4. DEXAMETHASONE [Concomitant]

REACTIONS (2)
  - DEEP VEIN THROMBOSIS [None]
  - BILE DUCT OBSTRUCTION [None]
